FAERS Safety Report 23533791 (Version 1)
Quarter: 2024Q1

REPORT INFORMATION
  Report Type: Spontaneous
  Country: US (occurrence: US)
  Receive Date: 20240216
  Receipt Date: 20240216
  Transmission Date: 20240409
  Serious: Yes (Other)
  Sender: FDA-Public Use
  Company Number: US-Blueprint Medicines Corporation-2329

PATIENT
  Age: 69 Year
  Sex: Male

DRUGS (2)
  1. AYVAKIT [Suspect]
     Active Substance: AVAPRITINIB
     Indication: Gastrointestinal stromal tumour
     Dosage: TAKE ONE 25MG TABLET WITH ONE 50MG TABLET (TOTAL 75MG)
     Route: 048
     Dates: start: 20230316
  2. AYVAKIT [Suspect]
     Active Substance: AVAPRITINIB
     Indication: Neoplasm malignant
     Dosage: TAKE ONE 25MG TABLET WITH ONE 50MG TABLET (TOTAL 75MG)
     Route: 048
     Dates: start: 20230316

REACTIONS (2)
  - Neoplasm progression [Not Recovered/Not Resolved]
  - Abdominal mass [Not Recovered/Not Resolved]

NARRATIVE: CASE EVENT DATE: 20240102
